FAERS Safety Report 5244844-5 (Version None)
Quarter: 2007Q1

REPORT INFORMATION
  Report Type: 
  Country: None (occurrence: None)
  Receive Date: 20070216
  Receipt Date: 20070131
  Transmission Date: 20070707
  Serious: Yes (Other)
  Sender: FDA-Public Use
  Company Number: DSA_29314_2007

PATIENT
  Age: 35 Year
  Sex: Male

DRUGS (2)
  1. LORAZEPAM [Suspect]
     Dosage: 0.5 MG; PO
     Route: 048
  2. LORAZEPAM [Suspect]
     Dosage: 1 MG Q DAY; PO
     Route: 048
     Dates: start: 20050101

REACTIONS (2)
  - DRUG DEPENDENCE [None]
  - GENERAL PHYSICAL HEALTH DETERIORATION [None]
